FAERS Safety Report 6881046-0 (Version None)
Quarter: 2010Q2

REPORT INFORMATION
  Report Type: 
  Country: None (occurrence: None)
  Receive Date: 20100630
  Receipt Date: 20100507
  Transmission Date: 20101027
  Serious: No
  Sender: FDA-Public Use
  Company Number: 2010IP000054

PATIENT
  Age: 75 Year
  Sex: Female

DRUGS (2)
  1. BEPREVE [Suspect]
     Indication: EYE PRURITUS
     Dosage: 1 GTT;BID;OPH
     Dates: start: 20100501, end: 20100501
  2. MULTI-VITAMINS [Concomitant]

REACTIONS (1)
  - EYE IRRITATION [None]
